FAERS Safety Report 17755091 (Version 1)
Quarter: 2020Q2

REPORT INFORMATION
  Report Type: Spontaneous
  Country: IT (occurrence: IT)
  Receive Date: 20200507
  Receipt Date: 20200507
  Transmission Date: 20200714
  Serious: Yes (Hospitalization)
  Sender: FDA-Public Use
  Company Number: NVSC2020IT121297

PATIENT
  Age: 53 Year
  Sex: Female
  Weight: 60 kg

DRUGS (3)
  1. OXALIPLATINO 5 MG / 1 ML POLVO LIOFILIZADO PARA SOLUCION INYECTABLE [Suspect]
     Active Substance: OXALIPLATIN
     Indication: COLON CANCER RECURRENT
     Dosage: 140 MG, CYCLIC
     Route: 065
     Dates: start: 20200111, end: 20200210
  2. PANITUMUMAB [Concomitant]
     Active Substance: PANITUMUMAB
     Indication: PRODUCT USED FOR UNKNOWN INDICATION
     Route: 065
  3. CALCIUM LEVOFOLINATE [Concomitant]
     Active Substance: LEVOLEUCOVORIN CALCIUM
     Indication: PRODUCT USED FOR UNKNOWN INDICATION
     Route: 065

REACTIONS (5)
  - Tremor [Recovering/Resolving]
  - Pyrexia [Recovering/Resolving]
  - Tachycardia [Recovering/Resolving]
  - Dyspnoea [Recovering/Resolving]
  - Malaise [Recovering/Resolving]

NARRATIVE: CASE EVENT DATE: 20200210
